FAERS Safety Report 4634706-6 (Version None)
Quarter: 2005Q2

REPORT INFORMATION
  Report Type: 
  Country: None (occurrence: None)
  Receive Date: 20050412
  Receipt Date: 20040408
  Transmission Date: 20051028
  Serious: Yes (Hospitalization, Other)
  Sender: FDA-Public Use
  Company Number: 2004020482

PATIENT
  Age: 72 Year
  Sex: Female
  Weight: 60 kg

DRUGS (11)
  1. ATORVASTATIN CALCIUM [Suspect]
     Indication: HYPERCHOLESTEROLAEMIA
     Dosage: 40 MG DAILY, ORAL
     Route: 048
     Dates: start: 20000501, end: 20031101
  2. BISOPROLOL FUMARATE [Suspect]
     Indication: AORTIC BYPASS
     Dosage: 2.5 MG DAILY
     Dates: start: 20020901, end: 20031101
  3. BISOPROLOL FUMARATE [Suspect]
     Indication: AORTIC VALVE REPLACEMENT
     Dosage: 2.5 MG DAILY
     Dates: start: 20020901, end: 20031101
  4. BISOPROLOL FUMARATE [Suspect]
     Indication: HYPERTENSION
     Dosage: 2.5 MG DAILY
     Dates: start: 20020901, end: 20031101
  5. ASPIRIN [Suspect]
     Indication: AORTIC BYPASS
     Dosage: 100 MG
     Dates: start: 20000501, end: 20031101
  6. ASPIRIN [Suspect]
     Indication: AORTIC VALVE REPLACEMENT
     Dosage: 100 MG
     Dates: start: 20000501, end: 20031101
  7. ASPIRIN [Suspect]
     Indication: HYPERTENSION
     Dosage: 100 MG
     Dates: start: 20000501, end: 20031101
  8. ENALAPRIL MALEATE [Suspect]
     Indication: AORTIC VALVE REPLACEMENT
     Dosage: 5 MG DAILY, ORAL
     Route: 048
     Dates: start: 20020901, end: 20031101
  9. ENALAPRIL MALEATE [Suspect]
     Indication: HYPERTENSION
     Dosage: 5 MG DAILY, ORAL
     Route: 048
     Dates: start: 20020901, end: 20031101
  10. DOXYCYCLINE [Concomitant]
  11. LEVOTHYROXINE SODIUM [Concomitant]

REACTIONS (29)
  - ABDOMINAL PAIN UPPER [None]
  - ABDOMINAL TENDERNESS [None]
  - ACTIVATED PARTIAL THROMBOPLASTIN TIME PROLONGED [None]
  - ANOREXIA [None]
  - ANTINUCLEAR ANTIBODY POSITIVE [None]
  - BLOOD AMYLASE INCREASED [None]
  - BLOOD CREATINE INCREASED [None]
  - BLOOD GLUCOSE INCREASED [None]
  - BLOOD PRESSURE DIASTOLIC INCREASED [None]
  - CHROMATURIA [None]
  - CYTOMEGALOVIRUS ANTIBODY POSITIVE [None]
  - DIABETES MELLITUS [None]
  - EPSTEIN-BARR VIRUS ANTIBODY POSITIVE [None]
  - GENERAL PHYSICAL HEALTH DETERIORATION [None]
  - HAEMATOCRIT DECREASED [None]
  - HAEMOGLOBIN DECREASED [None]
  - HEPATIC FIBROSIS [None]
  - HEPATIC NECROSIS [None]
  - HEPATITIS TOXIC [None]
  - HEPATOCELLULAR DAMAGE [None]
  - HEPATOMEGALY [None]
  - INTERNATIONAL NORMALISED RATIO INCREASED [None]
  - LIPASE INCREASED [None]
  - PLATELET COUNT DECREASED [None]
  - PROTHROMBIN TIME PROLONGED [None]
  - RED BLOOD CELL COUNT DECREASED [None]
  - RED BLOOD CELL SEDIMENTATION RATE INCREASED [None]
  - URINARY TRACT INFECTION [None]
  - WHITE BLOOD CELL COUNT DECREASED [None]
